FAERS Safety Report 21823541 (Version 1)
Quarter: 2023Q1

REPORT INFORMATION
  Report Type: Spontaneous
  Country: US (occurrence: None)
  Receive Date: 20230104
  Receipt Date: 20230104
  Transmission Date: 20230418
  Serious: Yes (Other)
  Sender: FDA-Public Use
  Company Number: None

PATIENT
  Age: 67 Year
  Sex: Female

DRUGS (3)
  1. LACTULOSE [Suspect]
     Active Substance: LACTULOSE
     Indication: Constipation
     Dosage: OTHER QUANTITY : 1 TEASPOON(S);?FREQUENCY : AS NEEDED;?
     Route: 048
     Dates: start: 20221228, end: 20221229
  2. VITAMIN D3 [Concomitant]
     Active Substance: CHOLECALCIFEROL
  3. JWH-018 [Concomitant]
     Active Substance: JWH-018

REACTIONS (5)
  - Abdominal discomfort [None]
  - Vomiting [None]
  - Palpitations [None]
  - Flatulence [None]
  - Decreased appetite [None]

NARRATIVE: CASE EVENT DATE: 20221228
